FAERS Safety Report 4464711-4 (Version None)
Quarter: 2004Q3

REPORT INFORMATION
  Report Type: 
  Country: None (occurrence: None)
  Receive Date: 20040929
  Receipt Date: 20040910
  Transmission Date: 20050211
  Serious: Yes (Death, Life-Threatening)
  Sender: FDA-Public Use
  Company Number: JP_040603502

PATIENT
  Age: 59 Year
  Sex: Male
  Weight: 63 kg

DRUGS (9)
  1. GEMZAR [Suspect]
     Indication: PANCREATIC CARCINOMA
     Dosage: 800 MG OTHER
     Route: 042
     Dates: start: 20040607, end: 20040714
  2. FLUOROURACIL [Concomitant]
  3. CISPLATIN [Concomitant]
  4. DILTIAZEM HYDROCHLORIDE [Concomitant]
  5. MUCOSOLVAN (AMBROXOL HYDROCHLORIDE) [Concomitant]
  6. DASEN (SERRAPEPTASE) [Concomitant]
  7. TOUGHMAC E [Concomitant]
  8. MUCOSTA (REBAMIPIDE) [Concomitant]
  9. KADIAN [Concomitant]

REACTIONS (8)
  - BLOOD IMMUNOGLOBULIN E INCREASED [None]
  - DYSPNOEA [None]
  - EOSINOPHIL COUNT INCREASED [None]
  - INTERSTITIAL LUNG DISEASE [None]
  - LYMPHANGIOSIS CARCINOMATOSA [None]
  - LYMPHOCYTE STIMULATION TEST NEGATIVE [None]
  - PO2 DECREASED [None]
  - RESPIRATORY FAILURE [None]
